FAERS Safety Report 9307177 (Version 4)
Quarter: 2013Q3

REPORT INFORMATION
  Report Type: Spontaneous
  Country: JP (occurrence: JP)
  Receive Date: 20130524
  Receipt Date: 20130930
  Transmission Date: 20140515
  Serious: Yes (Other)
  Sender: FDA-Public Use
  Company Number: JP-AMGEN-JPNSP2013016628

PATIENT
  Age: 69 Year
  Sex: Female
  Weight: 41 kg

DRUGS (17)
  1. ENBREL [Suspect]
     Indication: RHEUMATOID ARTHRITIS
     Dosage: 50 MG, WEEKLY
     Route: 058
     Dates: start: 20120404, end: 20130221
  2. ENBREL [Suspect]
     Dosage: 50 MG, QWK
     Route: 058
     Dates: start: 20130404
  3. RHEUMATREX /00113801/ [Suspect]
     Indication: RHEUMATOID ARTHRITIS
     Dosage: 6 MG, WEEKLY
     Route: 048
     Dates: start: 201108
  4. RHEUMATREX /00113801/ [Suspect]
     Dosage: 8 MG, WEEKLY
     Route: 048
     Dates: start: 201110
  5. RHEUMATREX /00113801/ [Suspect]
     Dosage: UNK
     Route: 048
     Dates: start: 201204
  6. EDIROL [Concomitant]
     Indication: OSTEOPOROSIS
     Dosage: UNK
     Route: 048
     Dates: start: 20120404, end: 20130221
  7. PREDONINE                          /00016201/ [Concomitant]
     Indication: ANTIINFLAMMATORY THERAPY
     Dosage: 5 MG, 1X/DAY
     Route: 048
     Dates: start: 20120404
  8. NEUROTROPIN                        /00398601/ [Concomitant]
     Indication: ANALGESIC THERAPY
     Dosage: UNK
     Route: 048
     Dates: start: 20120404
  9. BREDININ [Concomitant]
     Indication: RHEUMATOID ARTHRITIS
     Dosage: UNK
     Route: 048
     Dates: start: 20120404, end: 20130221
  10. ISCOTIN                            /00030201/ [Concomitant]
     Indication: ANTIBIOTIC PROPHYLAXIS
     Dosage: UNK
     Route: 048
     Dates: start: 20120404
  11. PYDOXAL [Concomitant]
     Indication: ANTIVIRAL PROPHYLAXIS
     Dosage: UNK, THREE TIMES DAILY
     Dates: start: 20120404
  12. FOLIAMIN [Concomitant]
     Indication: PROPHYLAXIS
     Dosage: UNK
     Route: 048
     Dates: start: 20120404, end: 20130221
  13. LOXONIN [Concomitant]
     Indication: ANALGESIC THERAPY
     Dosage: UNK
     Route: 062
     Dates: start: 20120404, end: 20130221
  14. CALONAL [Concomitant]
     Indication: ANALGESIC THERAPY
     Dosage: UNK
     Route: 048
     Dates: start: 20121101, end: 2013
  15. CALONAL [Concomitant]
     Indication: ANTIINFLAMMATORY THERAPY
  16. RECALBON [Concomitant]
     Indication: OSTEOPOROSIS
     Dosage: UNK
     Route: 048
     Dates: start: 20121206, end: 20130207
  17. LIMETHASON                         /00016002/ [Concomitant]
     Dosage: OCCASIONALLY ADMINISTERED

REACTIONS (5)
  - Chordae tendinae rupture [Recovered/Resolved]
  - Cardiac valve rupture [Recovered/Resolved]
  - Cough [Unknown]
  - Mitral valve incompetence [Unknown]
  - Cardiac failure [Recovered/Resolved]
